FAERS Safety Report 5736360-9 (Version None)
Quarter: 2008Q2

REPORT INFORMATION
  Report Type: 
  Country: None (occurrence: None)
  Receive Date: 20080508
  Receipt Date: 20080402
  Transmission Date: 20081010
  Serious: Yes (Death, Hospitalization, Other)
  Sender: FDA-Public Use
  Company Number: LITAE040208001

PATIENT
  Age: 70 Year
  Sex: Male

DRUGS (2)
  1. TRIMETHOPRIM [Suspect]
     Indication: URINARY TRACT INFECTION
     Dosage: ONE DOSE
  2. ^INHALERS^ [Concomitant]

REACTIONS (3)
  - CARDIAC ARREST [None]
  - GENERAL PHYSICAL HEALTH DETERIORATION [None]
  - TOXIC EPIDERMAL NECROLYSIS [None]
